FAERS Safety Report 7661839-2 (Version None)
Quarter: 2011Q3

REPORT INFORMATION
  Report Type: 
  Country: None (occurrence: None)
  Receive Date: 20110805
  Receipt Date: 20101129
  Transmission Date: 20111222
  Serious: No
  Sender: FDA-Public Use
  Company Number: US-ABBOTT-10P-163-0688105-00

PATIENT
  Sex: Female

DRUGS (6)
  1. NIASPAN [Suspect]
     Indication: LOW DENSITY LIPOPROTEIN INCREASED
     Route: 048
     Dates: start: 20101119
  2. GABAPENTIN [Concomitant]
     Indication: PRODUCT USED FOR UNKNOWN INDICATION
  3. THYROID TAB [Concomitant]
     Indication: PRODUCT USED FOR UNKNOWN INDICATION
  4. COQ10 [Concomitant]
     Indication: PRODUCT USED FOR UNKNOWN INDICATION
  5. VALTREX [Concomitant]
     Indication: PRODUCT USED FOR UNKNOWN INDICATION
  6. VIT D [Concomitant]
     Indication: PRODUCT USED FOR UNKNOWN INDICATION

REACTIONS (3)
  - ERYTHEMA [None]
  - FLUSHING [None]
  - FEELING HOT [None]
